FAERS Safety Report 8583564-6 (Version None)
Quarter: 2012Q3

REPORT INFORMATION
  Report Type: 
  Country: None (occurrence: None)
  Receive Date: 20120809
  Receipt Date: 20120718
  Transmission Date: 20120928
  Serious: No
  Sender: FDA-Public Use
  Company Number: US-ASTRAZENECA-2012SE50965

PATIENT
  Age: 0 Year
  Sex: Male

DRUGS (1)
  1. BRILINTA [Suspect]
     Indication: ACUTE CORONARY SYNDROME
     Route: 048
     Dates: start: 20120101, end: 20120101

REACTIONS (4)
  - ANXIETY [None]
  - DYSPNOEA [None]
  - MUSCULOSKELETAL PAIN [None]
  - DYSPNOEA PAROXYSMAL NOCTURNAL [None]
